FAERS Safety Report 7444887-7 (Version None)
Quarter: 2011Q2

REPORT INFORMATION
  Report Type: 
  Country: None (occurrence: None)
  Receive Date: 20110429
  Receipt Date: 20110418
  Transmission Date: 20111010
  Serious: Yes (Other)
  Sender: FDA-Public Use
  Company Number: PHHY2010US83431

PATIENT
  Sex: Male
  Weight: 78.458 kg

DRUGS (6)
  1. TAXOTERE [Concomitant]
     Indication: PROSTATE CANCER METASTATIC
     Dosage: 150 MG, EVERY 3 WEEKS
     Route: 042
     Dates: start: 20100913, end: 20101105
  2. JEVTANA KIT [Concomitant]
     Indication: PROSTATE CANCER METASTATIC
     Dosage: 48 MG, EVERY 3 WEEKS
     Route: 042
     Dates: start: 20101208, end: 20110119
  3. ZOMETA [Suspect]
     Indication: PROSTATE CANCER METASTATIC
  4. DENOSUMAB [Concomitant]
     Indication: METASTASES TO BONE
     Dosage: 120 MG, UNK
     Route: 058
     Dates: start: 20110330
  5. ZOMETA [Suspect]
     Indication: METASTASES TO BONE
     Dosage: 4 MG, QMO
     Route: 042
     Dates: start: 20100913, end: 20110302
  6. LUPRON [Concomitant]
     Indication: PROSTATE CANCER METASTATIC
     Dosage: 48 MG, UNK
     Route: 058

REACTIONS (6)
  - VISUAL FIELD DEFECT [None]
  - VISUAL ACUITY REDUCED [None]
  - EYE DISORDER [None]
  - VISUAL IMPAIRMENT [None]
  - RETINAL DETACHMENT [None]
  - LACRIMATION INCREASED [None]
